FAERS Safety Report 14169240 (Version 1)
Quarter: 2017Q4

REPORT INFORMATION
  Report Type: Spontaneous
  Country: US (occurrence: US)
  Receive Date: 20171108
  Receipt Date: 20171108
  Transmission Date: 20180321
  Serious: Yes (Hospitalization, Other)
  Sender: FDA-Public Use
  Company Number: US-009507513-1711USA002752

PATIENT
  Age: 30 Year
  Sex: Female
  Weight: 54.42 kg

DRUGS (1)
  1. NEXPLANON [Suspect]
     Active Substance: ETONOGESTREL
     Indication: CONTRACEPTION
     Dosage: 1 DF, UNK
     Route: 059
     Dates: start: 201612, end: 201708

REACTIONS (8)
  - Cardiac disorder [Unknown]
  - Haemoglobin decreased [Unknown]
  - Migraine [Not Recovered/Not Resolved]
  - Haemorrhage [Unknown]
  - Menometrorrhagia [Unknown]
  - Menstruation irregular [Not Recovered/Not Resolved]
  - Dyspnoea [Unknown]
  - Cyanosis [Unknown]

NARRATIVE: CASE EVENT DATE: 2017
